FAERS Safety Report 6083101-4 (Version None)
Quarter: 2009Q1

REPORT INFORMATION
  Report Type: 
  Country: None (occurrence: None)
  Receive Date: 20090213
  Receipt Date: 20090213
  Transmission Date: 20090719
  Serious: No
  Sender: FDA-Public Use
  Company Number: None

PATIENT
  Sex: Male
  Weight: 58.9676 kg

DRUGS (1)
  1. VENTOLIN HFA [Suspect]
     Dosage: 2 PUFFS EVERY 4 HRS
     Dates: start: 20090119

REACTIONS (3)
  - DEVICE MALFUNCTION [None]
  - DRUG EFFECT DECREASED [None]
  - PRODUCT QUALITY ISSUE [None]
